FAERS Safety Report 25834571 (Version 2)
Quarter: 2025Q3

REPORT INFORMATION
  Report Type: Spontaneous
  Country: US (occurrence: US)
  Receive Date: 20250923
  Receipt Date: 20250924
  Transmission Date: 20251020
  Serious: Yes (Other)
  Sender: BRISTOL-MYERS SQUIBB COMPANY
  Company Number: US-BRISTOL-MYERS SQUIBB COMPANY-2025-130152

PATIENT
  Sex: Male

DRUGS (2)
  1. ELIQUIS [Suspect]
     Active Substance: APIXABAN
     Indication: Product used for unknown indication
  2. LORBRENA [Suspect]
     Active Substance: LORLATINIB
     Indication: Small cell lung cancer

REACTIONS (2)
  - Mania [Not Recovered/Not Resolved]
  - Psychotic disorder [Unknown]
